FAERS Safety Report 5329842-5 (Version None)
Quarter: 2007Q2

REPORT INFORMATION
  Report Type: 
  Country: None (occurrence: None)
  Receive Date: 20070517
  Receipt Date: 20070517
  Transmission Date: 20071010
  Serious: Yes (Hospitalization, Disabling, Other)
  Sender: FDA-Public Use
  Company Number: None

PATIENT
  Age: 48 Year
  Sex: Male
  Weight: 97.5234 kg

DRUGS (2)
  1. PRIALT [Suspect]
     Indication: COMPLEX REGIONAL PAIN SYNDROME
     Dosage: VARIOUS CONTINUOUS INFUSION
     Dates: start: 20041101, end: 20050401
  2. PRIALT [Suspect]
     Indication: PAIN IN EXTREMITY
     Dosage: VARIOUS CONTINUOUS INFUSION
     Dates: start: 20041101, end: 20050401

REACTIONS (38)
  - ANXIETY [None]
  - BLOOD PRESSURE INCREASED [None]
  - BONE PAIN [None]
  - CATHETER RELATED COMPLICATION [None]
  - CHEST DISCOMFORT [None]
  - DEVICE LEAKAGE [None]
  - DIARRHOEA [None]
  - DISCOMFORT [None]
  - DIZZINESS [None]
  - DYSPNOEA [None]
  - FATIGUE [None]
  - FEAR [None]
  - FEAR OF DEATH [None]
  - FLANK PAIN [None]
  - HEAD INJURY [None]
  - HEADACHE [None]
  - HYPERHIDROSIS [None]
  - HYPERTENSION [None]
  - INCORRECT ROUTE OF DRUG ADMINISTRATION [None]
  - INFLUENZA LIKE ILLNESS [None]
  - MALAISE [None]
  - MEDICATION ERROR [None]
  - MENTAL DISORDER [None]
  - MUSCULOSKELETAL STIFFNESS [None]
  - MYALGIA [None]
  - NECK PAIN [None]
  - NERVOUSNESS [None]
  - NEURALGIA [None]
  - PAIN [None]
  - PHOTOPSIA [None]
  - PSYCHOTIC DISORDER [None]
  - RENAL PAIN [None]
  - SELF INJURIOUS BEHAVIOUR [None]
  - SENSATION OF PRESSURE [None]
  - SENSORY DISTURBANCE [None]
  - SOCIAL AVOIDANT BEHAVIOUR [None]
  - SUICIDE ATTEMPT [None]
  - TREATMENT NONCOMPLIANCE [None]
